FAERS Safety Report 4821639-5 (Version None)
Quarter: 2005Q4

REPORT INFORMATION
  Report Type: 
  Country: None (occurrence: None)
  Receive Date: 20051107
  Receipt Date: 20051102
  Transmission Date: 20060501
  Serious: Yes (Hospitalization)
  Sender: FDA-Public Use
  Company Number: NZ-MERCK-0511NZL00014

PATIENT
  Age: 53 Year
  Sex: Male

DRUGS (7)
  1. ZOCOR [Suspect]
     Indication: BLOOD CHOLESTEROL INCREASED
     Route: 048
     Dates: start: 20010401
  2. CILAZAPRIL [Concomitant]
     Route: 065
  3. METFORMIN [Concomitant]
     Route: 065
  4. DICLOFENAC [Concomitant]
     Route: 065
  5. DICLOFENAC SODIUM [Concomitant]
     Route: 065
  6. GLICLAZIDE [Concomitant]
     Route: 065
  7. ASPIRIN [Concomitant]
     Route: 065

REACTIONS (2)
  - CHEST DISCOMFORT [None]
  - HEPATOMEGALY [None]
